FAERS Safety Report 10751865 (Version 4)
Quarter: 2015Q1

REPORT INFORMATION
  Report Type: Spontaneous
  Country: DE (occurrence: DE)
  Receive Date: 20150130
  Receipt Date: 20150327
  Transmission Date: 20150721
  Serious: Yes (Hospitalization, Other)
  Sender: FDA-Public Use
  Company Number: DE-ALEXION PHARMACEUTICALS INC-A201500243

PATIENT

DRUGS (4)
  1. SOLIRIS [Suspect]
     Active Substance: ECULIZUMAB
     Indication: OFF LABEL USE
     Dosage: 1200 MG, Q2W
     Route: 042
     Dates: start: 20150130
  2. CYCLOPHOSPHAMIDE. [Concomitant]
     Active Substance: CYCLOPHOSPHAMIDE
     Indication: HAEMOLYTIC ANAEMIA
     Dosage: 1000 MG, SINGLE
     Route: 042
     Dates: start: 20150109, end: 20150109
  3. SOLIRIS [Suspect]
     Active Substance: ECULIZUMAB
     Indication: AUTOIMMUNE HAEMOLYTIC ANAEMIA
  4. SOLIRIS [Suspect]
     Active Substance: ECULIZUMAB
     Indication: HAEMOLYTIC URAEMIC SYNDROME
     Dosage: 900 MG, QW
     Route: 042
     Dates: start: 20141216, end: 20141230

REACTIONS (7)
  - Infection [Unknown]
  - Haemoglobin decreased [Unknown]
  - Autoimmune haemolytic anaemia [Unknown]
  - Off label use [Unknown]
  - Blood lactate dehydrogenase increased [Unknown]
  - Clostridium difficile infection [Unknown]
  - Thrombocytopenia [Unknown]
